FAERS Safety Report 22661585 (Version 1)
Quarter: 2023Q2

REPORT INFORMATION
  Report Type: Spontaneous
  Country: DE (occurrence: DE)
  Receive Date: 20230630
  Receipt Date: 20230630
  Transmission Date: 20230722
  Serious: No
  Sender: FDA-Public Use
  Company Number: DE-JAZZ PHARMACEUTICALS-2023-DE-001849

PATIENT
  Sex: Male

DRUGS (2)
  1. CANNABIDIOL [Suspect]
     Active Substance: CANNABIDIOL
     Indication: Tuberous sclerosis complex
     Dosage: 1.3 MILLILITER
  2. CANNABIDIOL [Suspect]
     Active Substance: CANNABIDIOL
     Dosage: 1.75 MILLILITER, BID

REACTIONS (1)
  - Diarrhoea [Unknown]
